FAERS Safety Report 5248709-4 (Version None)
Quarter: 2007Q1

REPORT INFORMATION
  Report Type: 
  Country: None (occurrence: None)
  Receive Date: 20070222
  Receipt Date: 20070207
  Transmission Date: 20070707
  Serious: Yes (Death, Hospitalization)
  Sender: FDA-Public Use
  Company Number: PAR_1362_2007

PATIENT
  Sex: Female

DRUGS (8)
  1. MEGESTROL ACETATE [Suspect]
     Indication: APPETITE DISORDER
     Dosage: 800 MG QDAY PO
     Route: 048
     Dates: start: 20060501
  2. MEGESTROL ACETATE [Suspect]
     Indication: APPETITE DISORDER
     Dosage: 400 MG QDAY PO
     Route: 048
     Dates: start: 20060201, end: 20060501
  3. MEGESTROL ACETATE [Suspect]
     Indication: APPETITE DISORDER
     Dosage: 100 MG QDAY PO
     Route: 048
     Dates: start: 20060201, end: 20060201
  4. REMERON [Concomitant]
  5. MARINOL [Concomitant]
  6. IRON [Concomitant]
  7. LASIX [Concomitant]
  8. COUMADIN [Concomitant]

REACTIONS (3)
  - DEEP VEIN THROMBOSIS [None]
  - PULMONARY EMBOLISM [None]
  - VAGINAL HAEMORRHAGE [None]
